FAERS Safety Report 16015745 (Version 1)
Quarter: 2019Q1

REPORT INFORMATION
  Report Type: Spontaneous
  Country: CA (occurrence: CA)
  Receive Date: 20190228
  Receipt Date: 20190228
  Transmission Date: 20190418
  Serious: Yes (Hospitalization)
  Sender: FDA-Public Use
  Company Number: CA-ASTRAZENECA-2019SE31330

PATIENT
  Age: 81 Year
  Sex: Male
  Weight: 60 kg

DRUGS (4)
  1. METOPROLOL. [Concomitant]
     Active Substance: METOPROLOL
  2. UBIQUINOL [Concomitant]
     Active Substance: UBIQUINOL
  3. TAGRISSO [Suspect]
     Active Substance: OSIMERTINIB
     Indication: LUNG NEOPLASM MALIGNANT
     Route: 048
  4. DILTIAZEM. [Concomitant]
     Active Substance: DILTIAZEM

REACTIONS (4)
  - Pulmonary toxicity [Unknown]
  - Imaging procedure abnormal [Unknown]
  - Dyspnoea [Unknown]
  - Cough [Unknown]
